FAERS Safety Report 4995342-5 (Version None)
Quarter: 2006Q2

REPORT INFORMATION
  Report Type: 
  Country: None (occurrence: None)
  Receive Date: 20060503
  Receipt Date: 20060413
  Transmission Date: 20061013
  Serious: Yes (Other)
  Sender: FDA-Public Use
  Company Number: USA0510110945

PATIENT
  Age: 62 Year
  Sex: Male

DRUGS (2)
  1. HUMULIN L [Suspect]
     Indication: DIABETES MELLITUS
     Dosage: 30 U, DAILY (1/D), SUBCUTANEOUS
     Route: 058
     Dates: start: 19980101
  2. HUMULIN R [Suspect]
     Indication: DIABETES MELLITUS
     Dosage: 50 U, DAILY (1/D), UNK
     Route: 065
     Dates: start: 19860101

REACTIONS (2)
  - MYOCARDIAL INFARCTION [None]
  - PROSTATE CANCER [None]
